FAERS Safety Report 7120956-6 (Version None)
Quarter: 2010Q4

REPORT INFORMATION
  Report Type: 
  Country: None (occurrence: None)
  Receive Date: 20101124
  Receipt Date: 20101123
  Transmission Date: 20110411
  Serious: Yes (Hospitalization)
  Sender: FDA-Public Use
  Company Number: US-MEDIMMUNE-MEDI-0011826

PATIENT
  Sex: Male

DRUGS (2)
  1. SYNAGIS [Suspect]
     Dates: start: 20101104, end: 20101104
  2. INFLUENZA VACCINE [Concomitant]

REACTIONS (2)
  - NASOPHARYNGITIS [None]
  - RESPIRATORY ARREST [None]
